FAERS Safety Report 12156038 (Version 1)
Quarter: 2016Q1

REPORT INFORMATION
  Report Type: Spontaneous
  Country: US (occurrence: US)
  Receive Date: 20160307
  Receipt Date: 20160307
  Transmission Date: 20160526
  Serious: Yes (Other)
  Sender: FDA-Public Use
  Company Number: US-VALIDUS PHARMACEUTICALS LLC-US-2016VAL000241

PATIENT
  Age: 63 Year
  Sex: Male

DRUGS (5)
  1. CARBIDOPA. [Concomitant]
     Active Substance: CARBIDOPA
     Indication: PRODUCT USED FOR UNKNOWN INDICATION
     Dosage: 25 MG, TID
  2. CARBIDOPA. [Concomitant]
     Active Substance: CARBIDOPA
     Dosage: DOSE INCREASED FOURFOLD
  3. LEVODOPA [Concomitant]
     Active Substance: LEVODOPA
     Dosage: DOSE INCREASED FOURFOLD
  4. LEVODOPA [Concomitant]
     Active Substance: LEVODOPA
     Indication: PRODUCT USED FOR UNKNOWN INDICATION
     Dosage: 250 MG, TID
  5. BROMOCRIPTINE MESYLATE [Suspect]
     Active Substance: BROMOCRIPTINE MESYLATE
     Indication: PARKINSONISM
     Dosage: 5 MG, UNK

REACTIONS (1)
  - Chorea [Recovering/Resolving]
